FAERS Safety Report 11892231 (Version 2)
Quarter: 2016Q1

REPORT INFORMATION
  Report Type: Spontaneous
  Country: US (occurrence: US)
  Receive Date: 20160106
  Receipt Date: 20160107
  Transmission Date: 20160526
  Serious: Yes (Other)
  Sender: FDA-Public Use
  Company Number: US-BAYER-2016-002297

PATIENT
  Age: 15 Year
  Sex: Female

DRUGS (1)
  1. SKYLA [Suspect]
     Active Substance: LEVONORGESTREL
     Indication: MENSTRUAL CYCLE MANAGEMENT
     Dosage: UNK
     Dates: start: 20151229

REACTIONS (3)
  - Post procedural haemorrhage [Recovered/Resolved]
  - Procedural pain [Not Recovered/Not Resolved]
  - Off label use of device [None]

NARRATIVE: CASE EVENT DATE: 20151229
